FAERS Safety Report 9973105 (Version 1)
Quarter: 2014Q1

REPORT INFORMATION
  Report Type: Report from Study
  Country: CA (occurrence: CA)
  Receive Date: 20140306
  Receipt Date: 20140306
  Transmission Date: 20141002
  Serious: Yes (Other)
  Sender: FDA-Public Use
  Company Number: CA-JNJFOC-20140218163

PATIENT
  Sex: Male
  Weight: 64 kg

DRUGS (1)
  1. REMICADE [Suspect]
     Indication: CROHN^S DISEASE
     Route: 042
     Dates: start: 20080821

REACTIONS (2)
  - Uveitis [Not Recovered/Not Resolved]
  - Herpes ophthalmic [Not Recovered/Not Resolved]
